FAERS Safety Report 17156671 (Version 1)
Quarter: 2019Q4

REPORT INFORMATION
  Report Type: Spontaneous
  Country: US (occurrence: US)
  Receive Date: 20191216
  Receipt Date: 20191216
  Transmission Date: 20200122
  Serious: Yes (Hospitalization)
  Sender: FDA-Public Use
  Company Number: US-ABBVIE-19K-163-3195173-00

PATIENT
  Age: 59 Year
  Sex: Male

DRUGS (1)
  1. IMBRUVICA [Suspect]
     Active Substance: IBRUTINIB
     Indication: PRODUCT USED FOR UNKNOWN INDICATION
     Route: 048

REACTIONS (5)
  - Spinal cord disorder [Unknown]
  - Gait disturbance [Unknown]
  - Incontinence [Unknown]
  - Dysstasia [Unknown]
  - Central nervous system lesion [Unknown]

NARRATIVE: CASE EVENT DATE: 20191202
